FAERS Safety Report 19030105 (Version 1)
Quarter: 2021Q1

REPORT INFORMATION
  Report Type: Spontaneous
  Country: US (occurrence: US)
  Receive Date: 20210318
  Receipt Date: 20210318
  Transmission Date: 20210420
  Serious: Yes (Hospitalization)
  Sender: FDA-Public Use
  Company Number: None

PATIENT
  Age: 62 Year
  Sex: Male
  Weight: 89.9 kg

DRUGS (14)
  1. AMLODIPINE [Concomitant]
     Active Substance: AMLODIPINE BESYLATE
  2. METFORMIN [Concomitant]
     Active Substance: METFORMIN HYDROCHLORIDE
  3. CLINDAMYCIN. [Concomitant]
     Active Substance: CLINDAMYCIN
  4. GAMUNEX?C [Suspect]
     Active Substance: HUMAN IMMUNOGLOBULIN G
     Indication: IMMUNE-MEDIATED NEUROPATHY
     Dosage: ?          OTHER FREQUENCY:MONTHLY;?
     Route: 042
  5. HYDROCORTISONE TOPICAL [Concomitant]
     Active Substance: HYDROCORTISONE
  6. LISINOPRIL. [Concomitant]
     Active Substance: LISINOPRIL
  7. NORTRIPTYLINE [Concomitant]
     Active Substance: NORTRIPTYLINE
  8. FLUTICASONE NASAL [Concomitant]
     Active Substance: FLUTICASONE
  9. ACYCLOVIR. [Concomitant]
     Active Substance: ACYCLOVIR
  10. LORATADINE. [Concomitant]
     Active Substance: LORATADINE
  11. AMMONIUM LACTATE CREAM [Concomitant]
     Active Substance: AMMONIUM LACTATE
  12. LIDOCAINE TOPICAL [Concomitant]
     Active Substance: LIDOCAINE
  13. ATORVASTATIN [Concomitant]
     Active Substance: ATORVASTATIN
  14. DIPHENHYDRAMINE. [Concomitant]
     Active Substance: DIPHENHYDRAMINE

REACTIONS (8)
  - Infusion site pruritus [None]
  - Paraesthesia oral [None]
  - Musculoskeletal discomfort [None]
  - Swelling face [None]
  - Tachycardia [None]
  - Chest pain [None]
  - Pruritus [None]
  - Infusion related reaction [None]
